FAERS Safety Report 8540897-7 (Version None)
Quarter: 2012Q3

REPORT INFORMATION
  Report Type: 
  Country: None (occurrence: None)
  Receive Date: 20120726
  Receipt Date: 20120724
  Transmission Date: 20120928
  Serious: Yes (Other)
  Sender: FDA-Public Use
  Company Number: US-PFIZER INC-2010048531

PATIENT
  Sex: Female
  Weight: 66.667 kg

DRUGS (4)
  1. CORTEF [Suspect]
     Indication: ADRENAL INSUFFICIENCY
     Dosage: 20 MG TABLET IN THE MORNING AND 10 MG TABLET AT NIGHT
     Route: 048
     Dates: start: 19870222
  2. PREDNISONE [Suspect]
     Indication: ADRENAL INSUFFICIENCY
  3. FLORINEF [Concomitant]
     Indication: ADRENAL INSUFFICIENCY
     Dosage: 0.1 MG SPLITTING DAILY
     Route: 048
  4. CORTEF [Suspect]
     Dosage: 20 MG TABLET IN THE MORNING AND 10 MG TABLET AT NIGHT
     Route: 048

REACTIONS (8)
  - MEMORY IMPAIRMENT [None]
  - BLOOD CHOLESTEROL INCREASED [None]
  - DRUG INEFFECTIVE [None]
  - DYSPEPSIA [None]
  - HAEMORRHAGE [None]
  - HORMONE LEVEL ABNORMAL [None]
  - OESOPHAGEAL PAIN [None]
  - THROAT IRRITATION [None]
